FAERS Safety Report 10457362 (Version 2)
Quarter: 2014Q4

REPORT INFORMATION
  Report Type: Report from Study
  Country: SI (occurrence: SI)
  Receive Date: 20140916
  Receipt Date: 20141121
  Transmission Date: 20150528
  Serious: Yes (Hospitalization, Other)
  Sender: FDA-Public Use
  Company Number: SI-BAYER-2014-137471

PATIENT
  Age: 56 Year
  Sex: Female

DRUGS (3)
  1. BETAFERON [Suspect]
     Active Substance: INTERFERON BETA-1B
     Indication: RELAPSING-REMITTING MULTIPLE SCLEROSIS
     Dosage: 1 DF, QOD
     Route: 058
     Dates: start: 1999
  2. LEXAURIN [Concomitant]
     Active Substance: BROMAZEPAM
     Dosage: 3 MG, HS
  3. CYMBALTA [Concomitant]
     Active Substance: DULOXETINE HYDROCHLORIDE
     Dosage: 60 MG, OM

REACTIONS (8)
  - Muscular weakness [None]
  - Multiple sclerosis relapse [None]
  - Hypotension [None]
  - Eye disorder [None]
  - Chills [None]
  - Hypertension [None]
  - Influenza like illness [None]
  - Loss of consciousness [None]

NARRATIVE: CASE EVENT DATE: 201408
